FAERS Safety Report 9158724 (Version 2)
Quarter: 2013Q2

REPORT INFORMATION
  Report Type: Report from Study
  Country: US (occurrence: US)
  Receive Date: 20130312
  Receipt Date: 20130510
  Transmission Date: 20140414
  Serious: Yes (Hospitalization)
  Sender: FDA-Public Use
  Company Number: US-ABBOTT-13P-163-1060533-00

PATIENT
  Age: 60 Year
  Sex: Male
  Weight: 71.28 kg

DRUGS (3)
  1. HUMIRA [Suspect]
     Indication: CROHN^S DISEASE
     Dates: start: 20130218
  2. UNKNOWN PAIN KILLER [Concomitant]
     Indication: PRODUCT USED FOR UNKNOWN INDICATION
  3. GASTROGRAFIN [Concomitant]
     Indication: PRODUCT USED FOR UNKNOWN INDICATION
     Dates: start: 20130307, end: 20130307

REACTIONS (4)
  - Large intestinal stenosis [Unknown]
  - Faecaloma [Recovered/Resolved]
  - Constipation [Recovered/Resolved]
  - Pain [Recovered/Resolved]
